APPROVED DRUG PRODUCT: NAPROXEN SODIUM
Active Ingredient: NAPROXEN SODIUM
Strength: 220MG
Dosage Form/Route: TABLET;ORAL
Application: A074635 | Product #001
Applicant: CONTRACT PHARMACAL CORP
Approved: Jan 13, 1997 | RLD: No | RS: No | Type: OTC